FAERS Safety Report 5642916-4 (Version None)
Quarter: 2008Q1

REPORT INFORMATION
  Report Type: 
  Country: None (occurrence: None)
  Receive Date: 20080227
  Receipt Date: 20080227
  Transmission Date: 20080703
  Serious: Yes (Hospitalization)
  Sender: FDA-Public Use
  Company Number: None

PATIENT
  Age: 38 Year
  Sex: Female

DRUGS (1)
  1. CHANTIX [Suspect]
     Indication: SMOKING CESSATION THERAPY
     Dosage: 1 MG BID OTHER
     Route: 050
     Dates: start: 20070701

REACTIONS (4)
  - DEPRESSION [None]
  - FLASHBACK [None]
  - NIGHTMARE [None]
  - POST-TRAUMATIC STRESS DISORDER [None]
